FAERS Safety Report 26180934 (Version 1)
Quarter: 2025Q4

REPORT INFORMATION
  Report Type: Spontaneous
  Country: US (occurrence: US)
  Receive Date: 20251221
  Receipt Date: 20251221
  Transmission Date: 20260117
  Serious: Yes (Life-Threatening, Other)
  Sender: AMGEN
  Company Number: US-AMGEN-USASP2025246406

PATIENT

DRUGS (1)
  1. BEVACIZUMAB [Suspect]
     Active Substance: BEVACIZUMAB
     Indication: Glioma
     Dosage: UNK
     Route: 065

REACTIONS (4)
  - Glioma [Unknown]
  - Fatigue [Unknown]
  - Hypertransaminasaemia [Unknown]
  - Off label use [Unknown]
